FAERS Safety Report 18967271 (Version 1)
Quarter: 2021Q1

REPORT INFORMATION
  Report Type: Spontaneous
  Country: NL (occurrence: NL)
  Receive Date: 20210304
  Receipt Date: 20210304
  Transmission Date: 20210420
  Serious: Yes (Hospitalization)
  Sender: FDA-Public Use
  Company Number: NL-TEVA-2021-NL-1885478

PATIENT
  Age: 74 Year
  Sex: Male
  Weight: 75 kg

DRUGS (11)
  1. OMEPRAZOL CAPSULE MSR 40MG / BRAND NAME NOT SPECIFIED [Concomitant]
     Active Substance: OMEPRAZOLE
     Dosage: 40 MG (MILLIGRAM) , THERAPY START DATE AND END DATE : ASKED BUT UNKNOWN
  2. FOLIUMZUUR TABLET 0,5MG / BRAND NAME NOT SPECIFIED [Concomitant]
     Active Substance: FOLIC ACID
     Dosage: 0,5 MG (MILLIGRAM) , THERAPY START DATE AND END DATE : ASKED BUT UNKNOWN
  3. OXYCODON TABLET MGA  10MG / BRAND NAME NOT SPECIFIED [Concomitant]
     Active Substance: OXYCODONE
     Dosage: 10 MG (MILLIGRAM) , THERAPY START DATE AND END DATE : ASKED BUT UNKNOWN
  4. PREDNISOLON TABLET  5MG / BRAND NAME NOT SPECIFIED [Concomitant]
     Active Substance: PREDNISOLONE
     Dosage: 5 MG (MILLIGRAM) , THERAPY START DATE AND END DATE : ASKED BUT UNKNOWN
  5. METOCLOPRAMIDE TABLET 10MG / BRAND NAME NOT SPECIFIED [Concomitant]
     Active Substance: METOCLOPRAMIDE
     Dosage: 10 MG (MILLIGRAM) , THERAPY START DATE AND END DATE : ASKED BUT UNKNOWN
  6. ROSUVASTATINE TABLET 10MG / BRAND NAME NOT SPECIFIED [Concomitant]
     Active Substance: ROSUVASTATIN
     Dosage: 10 MG (MILLIGRAM) , THERAPY START DATE AND END DATE : ASKED BUT UNKNOWN
  7. TAMSULOSINE CAPSULE MGA 0,4MG / BRAND NAME NOT SPECIFIED [Concomitant]
     Active Substance: TAMSULOSIN HYDROCHLORIDE
     Dosage: MODIFIED RELEASE CAPSULE , 0,4 MG (MILLIGRAM) , THERAPY START DATE AND END DATE : ASKED BUT UNKNOWN
  8. OXYCODON SMELTTABLET 5MG / BRAND NAME NOT SPECIFIED [Concomitant]
     Active Substance: OXYCODONE
     Dosage: MELTING TABLET , 5 MG (MILLIGRAM) , THERAPY START DATE AND END DATE : ASKED BUT UNKNOWN
  9. OXAZEPAM TABLET 10MG / BRAND NAME NOT SPECIFIED [Concomitant]
     Active Substance: OXAZEPAM
     Dosage: 10 MG (MILLIGRAM) , THERAPY START DATE AND END DATE : ASKED BUT UNKNOWN
  10. GEMCITABINE INFOPL CONC 40MG/ML / BRAND NAME NOT SPECIFIED [Suspect]
     Active Substance: GEMCITABINE
     Indication: MESOTHELIOMA
     Dosage: 1 DOSAGE FORMS DAILY; THERAPY END DATE : ASKED BUT UNKNOWN
     Dates: start: 20210211
  11. ENALAPRIL TABLET 10MG / BRAND NAME NOT SPECIFIED [Concomitant]
     Active Substance: ENALAPRIL
     Dosage: 10 MG (MILLIGRAM) , THERAPY START DATE AND END DATE : ASKED BUT UNKNOWN

REACTIONS (4)
  - Pyrexia [Recovering/Resolving]
  - Nausea [Recovering/Resolving]
  - Hypophagia [Recovering/Resolving]
  - Vomiting [Recovering/Resolving]

NARRATIVE: CASE EVENT DATE: 20210211
